FAERS Safety Report 6827434-X (Version None)
Quarter: 2010Q3

REPORT INFORMATION
  Report Type: 
  Country: None (occurrence: None)
  Receive Date: 20100709
  Receipt Date: 20070116
  Transmission Date: 20110219
  Serious: No
  Sender: FDA-Public Use
  Company Number: US-PFIZER INC-2007005131

PATIENT
  Sex: Male
  Weight: 92.99 kg

DRUGS (5)
  1. CHANTIX [Suspect]
     Indication: SMOKING CESSATION THERAPY
  2. DIUREX [Concomitant]
  3. ACIPHEX [Concomitant]
  4. NASACORT AQ [Concomitant]
  5. VITAMINS [Concomitant]

REACTIONS (3)
  - FEELING ABNORMAL [None]
  - INFLUENZA [None]
  - NAUSEA [None]
